FAERS Safety Report 22351915 (Version 1)
Quarter: 2023Q2

REPORT INFORMATION
  Report Type: Spontaneous
  Country: US (occurrence: None)
  Receive Date: 20230522
  Receipt Date: 20230522
  Transmission Date: 20230722
  Serious: No
  Sender: FDA-Public Use
  Company Number: None

PATIENT
  Sex: Female

DRUGS (3)
  1. NEORAL [Suspect]
     Active Substance: CYCLOSPORINE
     Indication: Liver transplant
     Dosage: 25 MG ORAL??TAKE 3 CAPSULES BY MOUTH EVERY 12 HOURS
     Route: 048
     Dates: start: 20160219
  2. CYCLOSPORINE MODIFIED [Concomitant]
     Active Substance: CYCLOSPORINE
  3. ZANTAC TAB [Concomitant]

REACTIONS (1)
  - Hysterectomy [None]
